FAERS Safety Report 5335941-4 (Version None)
Quarter: 2007Q2

REPORT INFORMATION
  Report Type: 
  Country: None (occurrence: None)
  Receive Date: 20070301
  Receipt Date: 20060824
  Transmission Date: 20071010
  Serious: Yes (Disabling)
  Sender: FDA-Public Use
  Company Number: 002#2#2006-00267

PATIENT
  Sex: Female

DRUGS (2)
  1. REGLAN [Suspect]
     Indication: GASTRITIS
     Dosage: ORAL
     Route: 048
     Dates: start: 19990824, end: 20031015
  2. REGLAN [Suspect]
     Indication: GASTROOESOPHAGEAL REFLUX DISEASE
     Dosage: ORAL
     Route: 048
     Dates: start: 19990824, end: 20031015

REACTIONS (1)
  - TARDIVE DYSKINESIA [None]
